FAERS Safety Report 8890430 (Version 1)
Quarter: 2012Q4

REPORT INFORMATION
  Report Type: 
  Country: TW (occurrence: TW)
  Receive Date: 20121106
  Receipt Date: 20121106
  Transmission Date: 20130627
  Serious: Yes (Hospitalization, Other)
  Sender: FDA-Public Use
  Company Number: TW-WATSON-2012-19068

PATIENT
  Age: 56 Year
  Sex: Female

DRUGS (1)
  1. METRONIDAZOLE (UNKNOWN) [Suspect]
     Indication: PROPHYLAXIS
     Dosage: 1500 mg, daily
     Route: 065

REACTIONS (1)
  - Encephalopathy [Recovered/Resolved]
